FAERS Safety Report 20368946 (Version 10)
Quarter: 2023Q1

REPORT INFORMATION
  Report Type: Spontaneous
  Country: US (occurrence: US)
  Receive Date: 20220124
  Receipt Date: 20230107
  Transmission Date: 20230418
  Serious: Yes (Life-Threatening, Hospitalization, Other)
  Sender: FDA-Public Use
  Company Number: US-UNITED THERAPEUTICS-UNT-2022-001327

PATIENT
  Age: 0 Year
  Sex: Male
  Weight: 4.082 kg

DRUGS (14)
  1. REMODULIN [Suspect]
     Active Substance: TREPROSTINIL
     Indication: Heritable pulmonary arterial hypertension
     Dosage: UNK, CONTINUING
     Route: 058
     Dates: start: 20211105
  2. REMODULIN [Suspect]
     Active Substance: TREPROSTINIL
     Dosage: 0.066 ?G/KG, CONTINUING
     Route: 058
  3. REMODULIN [Suspect]
     Active Substance: TREPROSTINIL
     Dosage: 0.071 ?G/KG, CONTINUING
     Route: 058
  4. REMODULIN [Suspect]
     Active Substance: TREPROSTINIL
     Indication: Heritable pulmonary arterial hypertension
     Dosage: UNK, CONTINUING
     Route: 058
  5. REMODULIN [Suspect]
     Active Substance: TREPROSTINIL
     Dosage: 0.071 ?G/KG, CONTINUING
     Route: 058
  6. REMODULIN [Suspect]
     Active Substance: TREPROSTINIL
     Dosage: 0.078 ?G/KG, CONTINUING
     Route: 058
  7. REMODULIN [Suspect]
     Active Substance: TREPROSTINIL
     Indication: Heritable pulmonary arterial hypertension
     Dosage: UNK, CONTINUING
     Route: 058
     Dates: start: 20210929
  8. ADEMPAS [Concomitant]
     Active Substance: RIOCIGUAT
     Indication: Pulmonary arterial hypertension
     Dosage: UNK
     Route: 048
     Dates: start: 202111
  9. ADEMPAS [Concomitant]
     Active Substance: RIOCIGUAT
     Dosage: 1 IN 0.33 DAY
     Route: 048
     Dates: start: 20211204
  10. TRACLEER [Concomitant]
     Active Substance: BOSENTAN
     Indication: Heritable pulmonary arterial hypertension
     Dosage: 16 MG, BID (1 TIME EVERY 0.5 DAY)
     Route: 065
     Dates: start: 20210929
  11. TRACLEER [Concomitant]
     Active Substance: BOSENTAN
     Dosage: 16 MG, BID (1 TIME EVERY 0.5 DAY)
     Route: 065
     Dates: start: 20211105
  12. TRACLEER [Concomitant]
     Active Substance: BOSENTAN
     Dosage: 32 MG, BID (1 TIME EVERY 0.5 DAY)
     Route: 065
     Dates: start: 20211105
  13. TRACLEER [Concomitant]
     Active Substance: BOSENTAN
     Dosage: UNK
     Route: 065
     Dates: start: 2022
  14. SILDENAFIL [Concomitant]
     Active Substance: SILDENAFIL
     Indication: Heritable pulmonary arterial hypertension
     Dosage: 1 IN 0.33 DAY
     Route: 048
     Dates: start: 20210827, end: 20211205

REACTIONS (9)
  - Acute respiratory failure [Recovered/Resolved]
  - COVID-19 pneumonia [Unknown]
  - Rhinovirus infection [Unknown]
  - Enterovirus infection [Unknown]
  - Pulmonary hypertensive crisis [Recovered/Resolved]
  - Oesophageal rupture [Recovered/Resolved]
  - Post procedural complication [Recovered/Resolved]
  - Gastrooesophageal reflux disease [Unknown]
  - Retching [Unknown]

NARRATIVE: CASE EVENT DATE: 20220113
